FAERS Safety Report 7816822-0 (Version None)
Quarter: 2011Q4

REPORT INFORMATION
  Report Type: 
  Country: None (occurrence: None)
  Receive Date: 20111017
  Receipt Date: 20111010
  Transmission Date: 20120403
  Serious: Yes (Death)
  Sender: FDA-Public Use
  Company Number: US-ASTELLAS-2011US003320

PATIENT
  Sex: Male

DRUGS (1)
  1. ERLOTINIB HYDROCHLORIDE [Suspect]
     Indication: LUNG CARCINOMA CELL TYPE UNSPECIFIED STAGE 0
     Dosage: 100 MG, UID/QD
     Route: 048
     Dates: start: 20110613

REACTIONS (6)
  - RASH [None]
  - PNEUMONIA [None]
  - DIARRHOEA [None]
  - RESPIRATORY FAILURE [None]
  - PULMONARY EMBOLISM [None]
  - DISEASE PROGRESSION [None]
